FAERS Safety Report 22243073 (Version 3)
Quarter: 2025Q4

REPORT INFORMATION
  Report Type: Report from Study
  Country: US (occurrence: US)
  Receive Date: 20230424
  Receipt Date: 20251226
  Transmission Date: 20260117
  Serious: Yes (Congenital Anomaly, Other)
  Sender: GLAXOSMITHKLINE
  Company Number: US-GLAXOSMITHKLINE-US2023AMR055126

PATIENT
  Sex: Female
  Weight: 1.5 kg

DRUGS (21)
  1. BELIMUMAB [Suspect]
     Active Substance: BELIMUMAB
     Indication: Lupus nephritis
     Dosage: 200 MG, WE
  2. DIPHTHERIA AND TETANUS TOXOIDS AND PERTUSSIS VACCINE [Suspect]
     Active Substance: DIPHTHERIA AND TETANUS TOXOIDS AND PERTUSSIS VACCINE
     Indication: Prophylaxis
  3. INFLUENZA VIRUS VACCINE [Suspect]
     Active Substance: INFLUENZA VIRUS VACCINE
     Indication: Prophylaxis
  4. ACYCLOVIR [Suspect]
     Active Substance: ACYCLOVIR
     Indication: Antiviral prophylaxis
     Dosage: 800 MG, QD
  5. ACYCLOVIR [Suspect]
     Active Substance: ACYCLOVIR
     Dosage: 1200 MG, QD
  6. AMITRIPTYLINE [Suspect]
     Active Substance: AMITRIPTYLINE
     Indication: Neuropathy peripheral
     Dosage: 10 MG, QD
  7. ASPIRIN [Suspect]
     Active Substance: ASPIRIN
     Indication: Pre-eclampsia
     Dosage: 162 MG, QD
  8. CALCIUM [Suspect]
     Active Substance: CALCIUM
     Indication: Osteopenia
     Dosage: 600 MG, BID
  9. HYDROXYCHLOROQUINE SULFATE [Suspect]
     Active Substance: HYDROXYCHLOROQUINE SULFATE
     Indication: Lupus nephritis
     Dosage: 400 MG, QD
  10. LABETALOL [Suspect]
     Active Substance: LABETALOL
     Indication: Hypertension
     Dosage: 400 MG, QD
  11. LABETALOL [Suspect]
     Active Substance: LABETALOL
     Dosage: 300 MG, QD
  12. MAGNESIUM [Suspect]
     Active Substance: MAGNESIUM
     Indication: Blood magnesium decreased
     Dosage: 131 MG, QD
  13. MODERNA COVID-19 VACCINE [Suspect]
     Active Substance: ELASOMERAN
     Indication: Immunisation
     Dosage: UNK, 1 SHOT
  14. NIFEDIPINE [Suspect]
     Active Substance: NIFEDIPINE
     Indication: Hypertension
     Dosage: 90 MG, QD
  15. NITROFURANTOIN [Suspect]
     Active Substance: NITROFURANTOIN
     Indication: Prophylaxis urinary tract infection
     Dosage: 100 MG, QD
  16. OMEGA-3 FATTY ACIDS [Suspect]
     Active Substance: OMEGA-3 FATTY ACIDS
     Indication: Dry eye
     Dosage: 1280 MG, QD
  17. OMEPRAZOLE [Suspect]
     Active Substance: OMEPRAZOLE
     Indication: Dyspepsia
     Dosage: 20 MG, QD
  18. PNEUMOCOCCAL VACCINE POLYVALENT [Suspect]
     Active Substance: PNEUMOCOCCAL VACCINE POLYVALENT
     Indication: Dyspepsia
     Dosage: UNK, 1  SHOT
  19. PREDNISONE [Suspect]
     Active Substance: PREDNISONE
     Indication: Lupus nephritis
     Dosage: 10 MG, QD
  20. TUMS [Suspect]
     Active Substance: CALCIUM CARBONATE
     Indication: Dyspepsia
     Dosage: 1 DF, QD
  21. VITAMIN D3 [Suspect]
     Active Substance: CHOLECALCIFEROL
     Indication: Osteopenia
     Dosage: 5000 IU, QD

REACTIONS (6)
  - Neonatal lupus erythematosus [Unknown]
  - Thrombocytopenia [Unknown]
  - Rash [Unknown]
  - Adrenoleukodystrophy [Unknown]
  - Low birth weight baby [Unknown]
  - Foetal exposure during pregnancy [Unknown]

NARRATIVE: CASE EVENT DATE: 20230101
